FAERS Safety Report 19407020 (Version 1)
Quarter: 2021Q2

REPORT INFORMATION
  Report Type: Spontaneous
  Country: US (occurrence: US)
  Receive Date: 20210611
  Receipt Date: 20210611
  Transmission Date: 20210717
  Serious: Yes (Life-Threatening, Hospitalization, Other)
  Sender: FDA-Public Use
  Company Number: US-JNJFOC-20210606599

PATIENT
  Age: 11 Year
  Sex: Male
  Weight: 36.7 kg

DRUGS (1)
  1. IBUPROFEN. [Suspect]
     Active Substance: IBUPROFEN
     Indication: PRODUCT USED FOR UNKNOWN INDICATION
     Dosage: INGESTED FOUR HUNDRED 200 MG TABLETS OF IBUPROFEN, OVERDOSE,IBUPROFEN: 200MG;
     Route: 048

REACTIONS (8)
  - Depressed level of consciousness [Recovering/Resolving]
  - Hypotension [Recovering/Resolving]
  - Pulmonary oedema [Recovering/Resolving]
  - Mental status changes [Recovering/Resolving]
  - Pneumonia aspiration [Recovering/Resolving]
  - Acidosis [Recovering/Resolving]
  - Vomiting [Recovering/Resolving]
  - Overdose [Recovering/Resolving]
